FAERS Safety Report 5394996-1 (Version None)
Quarter: 2007Q3

REPORT INFORMATION
  Report Type: 
  Country: None (occurrence: None)
  Receive Date: 20070713
  Receipt Date: 20070411
  Transmission Date: 20080115
  Serious: Yes (Hospitalization)
  Sender: FDA-Public Use
  Company Number: US-JNJFOC-20061101257

PATIENT
  Age: 39 Year
  Sex: Female
  Weight: 58.9676 kg

DRUGS (3)
  1. ORTHO EVRA [Suspect]
     Indication: DRUG USE FOR UNKNOWN INDICATION
     Dosage: TRANSDERMAL
     Route: 062
     Dates: start: 20021001
  2. ZOCOR [Concomitant]
  3. IBUPROFIN (IBUPROFEN) [Concomitant]

REACTIONS (2)
  - PHLEBITIS SUPERFICIAL [None]
  - PULMONARY EMBOLISM [None]
